FAERS Safety Report 17967227 (Version 5)
Quarter: 2020Q3

REPORT INFORMATION
  Report Type: Spontaneous
  Country: PL (occurrence: PL)
  Receive Date: 20200701
  Receipt Date: 20200811
  Transmission Date: 20201103
  Serious: Yes (Hospitalization, Other)
  Sender: FDA-Public Use
  Company Number: NVSC2020PL183014

PATIENT
  Age: 42 Year
  Sex: Female

DRUGS (9)
  1. PREDNISONE. [Suspect]
     Active Substance: PREDNISONE
     Dosage: 5 MG, QD
     Route: 065
     Dates: start: 201810
  2. TACROLIMUS. [Suspect]
     Active Substance: TACROLIMUS
     Dosage: 2 MG, QD
     Route: 065
  3. TACROLIMUS. [Suspect]
     Active Substance: TACROLIMUS
     Indication: IMMUNOSUPPRESSANT DRUG THERAPY
     Dosage: 7 MG, QD
     Route: 065
     Dates: start: 2017
  4. PREDNISONE. [Suspect]
     Active Substance: PREDNISONE
     Indication: IMMUNOSUPPRESSANT DRUG THERAPY
     Dosage: UNK
     Route: 065
     Dates: start: 2017
  5. MYCOPHENOLATE MOFETIL. [Suspect]
     Active Substance: MYCOPHENOLATE MOFETIL
     Indication: IMMUNOSUPPRESSANT DRUG THERAPY
     Dosage: UNK
     Route: 065
     Dates: start: 2017, end: 2019
  6. THYMOGLOBULIN [Suspect]
     Active Substance: LAPINE T-LYMPHOCYTE IMMUNE GLOBULIN
     Indication: IMMUNOSUPPRESSANT DRUG THERAPY
     Dosage: UNK
     Route: 065
     Dates: start: 201712
  7. EVEROLIMUS. [Suspect]
     Active Substance: EVEROLIMUS
     Indication: RENAL AND PANCREAS TRANSPLANT
     Dosage: LOW DOSE
     Route: 065
     Dates: start: 201901
  8. EVEROLIMUS. [Suspect]
     Active Substance: EVEROLIMUS
     Indication: PROPHYLAXIS AGAINST TRANSPLANT REJECTION
  9. EVEROLIMUS. [Suspect]
     Active Substance: EVEROLIMUS
     Indication: IMMUNOSUPPRESSANT DRUG THERAPY

REACTIONS (23)
  - Pneumonia [Recovered/Resolved]
  - Rales [Recovering/Resolving]
  - Urinary tract infection [Recovering/Resolving]
  - Parvovirus B19 infection [Recovered/Resolved]
  - Cough [Recovering/Resolving]
  - Tinea infection [Recovering/Resolving]
  - Wound infection [Recovering/Resolving]
  - Crepitations [Recovering/Resolving]
  - Escherichia infection [Recovering/Resolving]
  - Cytomegalovirus infection [Recovering/Resolving]
  - Escherichia urinary tract infection [Recovered/Resolved]
  - Pyrexia [Recovering/Resolving]
  - Arthralgia [Recovering/Resolving]
  - Reticulocytopenia [Recovering/Resolving]
  - Product use in unapproved indication [Unknown]
  - Aplasia pure red cell [Recovered/Resolved]
  - Candida infection [Recovering/Resolving]
  - Asthenia [Recovering/Resolving]
  - Normocytic anaemia [Recovering/Resolving]
  - Herpes zoster [Recovering/Resolving]
  - Epstein-Barr virus infection [Recovering/Resolving]
  - Infection [Unknown]
  - Erythropoiesis abnormal [Recovering/Resolving]

NARRATIVE: CASE EVENT DATE: 2017
